FAERS Safety Report 6847688-3 (Version None)
Quarter: 2010Q3

REPORT INFORMATION
  Report Type: 
  Country: None (occurrence: None)
  Receive Date: 20100716
  Receipt Date: 20100706
  Transmission Date: 20110219
  Serious: Yes (Other)
  Sender: FDA-Public Use
  Company Number: PHEH2009US18514

PATIENT
  Sex: Male

DRUGS (1)
  1. EXJADE [Suspect]
     Dosage: 1375 MG, DAILY
     Route: 048

REACTIONS (2)
  - NEOPLASM MALIGNANT [None]
  - WEIGHT DECREASED [None]
